FAERS Safety Report 4384700-8 (Version None)
Quarter: 2004Q2

REPORT INFORMATION
  Report Type: 
  Country: None (occurrence: None)
  Receive Date: 20040625
  Receipt Date: 20040611
  Transmission Date: 20050107
  Serious: Yes (Other)
  Sender: FDA-Public Use
  Company Number: PHBS2004CA07755

PATIENT
  Age: 58 Year
  Sex: Female
  Weight: 99 kg

DRUGS (2)
  1. SANDOSTATIN [Suspect]
     Indication: ACROMEGALY
     Dosage: .5 L, BID
     Route: 058
  2. TIMOPTIC-XE [Concomitant]
     Dosage: UNK, UNK

REACTIONS (1)
  - RECTAL CANCER STAGE I [None]
